FAERS Safety Report 4818333-3 (Version None)
Quarter: 2005Q4

REPORT INFORMATION
  Report Type: 
  Country: None (occurrence: None)
  Receive Date: 20051102
  Receipt Date: 20050704
  Transmission Date: 20060501
  Serious: Yes (Hospitalization)
  Sender: FDA-Public Use
  Company Number: 2005AP03664

PATIENT
  Age: 30160 Day
  Sex: Female
  Weight: 41.2 kg

DRUGS (6)
  1. IRESSA [Suspect]
     Indication: LUNG ADENOCARCINOMA
     Route: 048
     Dates: start: 20050608, end: 20050701
  2. IRESSA [Suspect]
     Route: 048
     Dates: start: 20050713
  3. GASTER D [Concomitant]
     Indication: GASTRITIS
     Route: 048
  4. AM [Concomitant]
     Indication: GASTRITIS
     Route: 048
  5. GEMCITABINE [Concomitant]
     Dosage: 6 CYCLES
     Dates: start: 20040817, end: 20041130
  6. VINORELBINE [Concomitant]
     Dosage: 6 CYCLES
     Dates: start: 20040817, end: 20041130

REACTIONS (3)
  - HEPATIC FUNCTION ABNORMAL [None]
  - INGROWING NAIL [None]
  - SUBILEUS [None]
